FAERS Safety Report 4483538-0 (Version None)
Quarter: 2004Q4

REPORT INFORMATION
  Report Type: 
  Country: None (occurrence: None)
  Receive Date: 20041019
  Receipt Date: 20041019
  Transmission Date: 20050328
  Serious: Yes (Hospitalization)
  Sender: FDA-Public Use
  Company Number: None

PATIENT
  Sex: Male

DRUGS (7)
  1. GATIFLOXACIN [Suspect]
     Indication: AMPUTATION
     Dosage: 400 MG DAILY ORAL
     Route: 048
     Dates: start: 20040623, end: 20040713
  2. GLYBURIDE [Concomitant]
  3. METFORMIN HCL [Concomitant]
  4. OXYBUTININ [Concomitant]
  5. ARGINADE [Concomitant]
  6. BACLOFEN [Concomitant]
  7. TRAZODONE HCL [Concomitant]

REACTIONS (2)
  - BLOOD GLUCOSE DECREASED [None]
  - MENTAL STATUS CHANGES [None]
